FAERS Safety Report 7162402-2 (Version None)
Quarter: 2010Q4

REPORT INFORMATION
  Report Type: 
  Country: None (occurrence: None)
  Receive Date: 20101215
  Receipt Date: 20080222
  Transmission Date: 20110411
  Serious: Yes (Other)
  Sender: FDA-Public Use
  Company Number: SG-ROCHE-747644

PATIENT

DRUGS (2)
  1. VALCYTE [Suspect]
     Dosage: STOPPED FOR 2-3 DAYS.
     Route: 065
  2. VALCYTE [Suspect]
     Route: 065

REACTIONS (2)
  - CYTOMEGALOVIRUS GASTRITIS [None]
  - PLATELET COUNT DECREASED [None]
